FAERS Safety Report 15402603 (Version 7)
Quarter: 2019Q1

REPORT INFORMATION
  Report Type: Report from Study
  Country: US (occurrence: US)
  Receive Date: 20180919
  Receipt Date: 20190326
  Transmission Date: 20190417
  Serious: Yes (Hospitalization)
  Sender: FDA-Public Use
  Company Number: US-ACTELION-A-NJ2018-168121

PATIENT
  Sex: Female
  Weight: 72.11 kg

DRUGS (4)
  1. OPSUMIT [Suspect]
     Active Substance: MACITENTAN
     Indication: PULMONARY ARTERIAL HYPERTENSION
     Dosage: 10 MG, QD
     Route: 048
  2. WARFARIN [Concomitant]
     Active Substance: WARFARIN
  3. ADEMPAS [Suspect]
     Active Substance: RIOCIGUAT
     Indication: PRODUCT USED FOR UNKNOWN INDICATION
     Dosage: 1 MG, TID
     Route: 065
  4. LISINOPRIL. [Suspect]
     Active Substance: LISINOPRIL
     Indication: PRODUCT USED FOR UNKNOWN INDICATION
     Route: 065

REACTIONS (28)
  - Angioplasty [Unknown]
  - Dyspepsia [Unknown]
  - Headache [Unknown]
  - Fatigue [Unknown]
  - Oxygen saturation decreased [Unknown]
  - Face oedema [Unknown]
  - Nausea [Unknown]
  - Conjunctivitis [Unknown]
  - Eye haemorrhage [Unknown]
  - Presyncope [Recovering/Resolving]
  - Oropharyngeal pain [Unknown]
  - Dyspnoea exertional [Not Recovered/Not Resolved]
  - Catheterisation cardiac [Unknown]
  - Abdominal pain upper [Unknown]
  - Throat irritation [Unknown]
  - Eye irritation [Unknown]
  - Urinary tract infection [Recovering/Resolving]
  - Sinusitis [Unknown]
  - Dyspnoea [Unknown]
  - Hypotension [Unknown]
  - Vision blurred [Unknown]
  - Dizziness [Unknown]
  - Feeling abnormal [Recovering/Resolving]
  - Ear infection [Unknown]
  - Pain [Unknown]
  - Cough [Unknown]
  - Nasal congestion [Unknown]
  - Back pain [Unknown]
